FAERS Safety Report 6178333-0 (Version None)
Quarter: 2009Q2

REPORT INFORMATION
  Report Type: 
  Country: None (occurrence: None)
  Receive Date: 20090504
  Receipt Date: 20090427
  Transmission Date: 20091009
  Serious: Yes (Hospitalization)
  Sender: FDA-Public Use
  Company Number: US-SANOFI-SYNTHELABO-F01200900404

PATIENT
  Sex: Male

DRUGS (9)
  1. ATIVAN [Concomitant]
     Dosage: UNK
  2. TYLENOL [Concomitant]
     Dosage: UNK
  3. STOOL SOFTENER NOS [Concomitant]
     Dosage: UNK
  4. FLOMAX [Concomitant]
     Dosage: UNK
  5. OXYCONTIN [Concomitant]
     Dosage: UNK
  6. LEUKOVORIN [Suspect]
     Indication: RECTAL CANCER
     Dosage: UNK
  7. FLUOROURACIL [Suspect]
     Indication: RECTAL CANCER
     Dosage: UNK
  8. BEVACIZUMAB [Suspect]
     Indication: RECTAL CANCER
     Dosage: UNK
  9. OXALIPLATIN [Suspect]
     Indication: RECTAL CANCER
     Dosage: UNK

REACTIONS (1)
  - ANORECTAL OPERATION [None]
